FAERS Safety Report 9239481 (Version 1)
Quarter: 2013Q2

REPORT INFORMATION
  Report Type: Spontaneous
  Country: US (occurrence: US)
  Receive Date: 20130418
  Receipt Date: 20130418
  Transmission Date: 20140414
  Serious: No
  Sender: FDA-Public Use
  Company Number: US-COVIDIEN/TYCO HEALTHCARE/MALLINCKRODT-T201300056

PATIENT
  Age: 56 Year
  Sex: Female

DRUGS (2)
  1. METHADOSE [Suspect]
     Indication: DRUG DEPENDENCE
     Dosage: 102 MG, QD
     Route: 048
     Dates: start: 20120706
  2. METHADOSE [Suspect]
     Dosage: UNK
     Dates: start: 2009, end: 20120706

REACTIONS (2)
  - Malaise [Unknown]
  - Drug effect decreased [Unknown]
